FAERS Safety Report 25857951 (Version 1)
Quarter: 2025Q3

REPORT INFORMATION
  Report Type: Spontaneous
  Country: US (occurrence: US)
  Receive Date: 20250929
  Receipt Date: 20250929
  Transmission Date: 20251021
  Serious: No
  Sender: ASTELLAS
  Company Number: US-ASTELLAS-2025-AER-051602

PATIENT
  Age: 85 Year
  Sex: Female

DRUGS (1)
  1. VEOZAH [Suspect]
     Active Substance: FEZOLINETANT
     Indication: Product used for unknown indication
     Route: 065
     Dates: start: 20250912

REACTIONS (1)
  - Back pain [Unknown]
